FAERS Safety Report 8819700 (Version 1)
Quarter: 2012Q4

REPORT INFORMATION
  Report Type: 
  Country: US (occurrence: US)
  Receive Date: 20121001
  Receipt Date: 20121001
  Transmission Date: 20130627
  Serious: Yes (Other)
  Sender: FDA-Public Use
  Company Number: US-JNJFOC-20120910219

PATIENT
  Sex: Male
  Weight: 71.67 kg

DRUGS (16)
  1. ZYTIGA [Suspect]
     Indication: PROSTATE CANCER METASTATIC
     Route: 048
     Dates: start: 2012, end: 201209
  2. ZYTIGA [Suspect]
     Indication: PROSTATE CANCER METASTATIC
     Route: 048
     Dates: start: 201209, end: 201209
  3. ZYTIGA [Suspect]
     Indication: PROSTATE CANCER METASTATIC
     Route: 048
     Dates: start: 201209
  4. PREDNISONE [Concomitant]
     Indication: PROSTATE CANCER
     Route: 048
  5. ASPIRIN [Concomitant]
     Indication: CARDIOVASCULAR EVENT PROPHYLAXIS
     Route: 048
  6. NITROGLYCERINE [Concomitant]
     Indication: CARDIAC DISORDER
     Route: 062
  7. DIGOXIN [Concomitant]
     Indication: ARRHYTHMIA PROPHYLAXIS
     Route: 048
  8. GABAPENTIN [Concomitant]
     Indication: SLEEP DISORDER
     Route: 048
  9. PAROXETINE  HCL [Concomitant]
     Indication: DEPRESSION
     Route: 048
  10. POTASSIUM [Concomitant]
     Indication: POLLAKIURIA
     Route: 048
  11. OMEPRAZOLE [Concomitant]
     Indication: GASTROOESOPHAGEAL REFLUX DISEASE
     Route: 048
  12. TRIAMCINOLONE [Concomitant]
     Indication: GENITAL RASH
     Route: 061
  13. DETROL LA [Concomitant]
     Indication: INCONTINENCE
     Route: 048
  14. MYLAN FENTANYL PATCH [Concomitant]
     Indication: CANCER PAIN
     Route: 062
  15. COLGATE PREVIDENT 5000 PLUS [Concomitant]
     Indication: DENTURE WEARER
     Route: 048
  16. CHLORHEXIDINE [Concomitant]
     Indication: DENTURE WEARER
     Route: 048

REACTIONS (11)
  - Osteonecrosis [Not Recovered/Not Resolved]
  - Headache [Not Recovered/Not Resolved]
  - Insomnia [Not Recovered/Not Resolved]
  - Arthralgia [Not Recovered/Not Resolved]
  - Muscle spasms [Not Recovered/Not Resolved]
  - Nodule [Not Recovered/Not Resolved]
  - Renal pain [Not Recovered/Not Resolved]
  - Pollakiuria [Not Recovered/Not Resolved]
  - Weight fluctuation [Not Recovered/Not Resolved]
  - Fluid retention [Not Recovered/Not Resolved]
  - Medication error [Not Recovered/Not Resolved]
